FAERS Safety Report 8026909 (Version 4)
Quarter: 2013Q3

REPORT INFORMATION
  Report Type: Report from Study
  Country: NZ (occurrence: NZ)
  Receive Date: 20110708
  Receipt Date: 20130808
  Transmission Date: 20140515
  Serious: Yes (Hospitalization)
  Sender: FDA-Public Use
  Company Number: NZ-ABBOTT-11P-118-0836294-03

PATIENT
  Age: 50 Year
  Sex: Male

DRUGS (26)
  1. HUMIRA [Suspect]
     Indication: CROHN^S DISEASE
     Dosage: BASELINE
     Route: 058
     Dates: start: 20091023, end: 20091023
  2. HUMIRA [Suspect]
     Route: 058
  3. HUMIRA [Suspect]
  4. GABAPENTIN [Concomitant]
     Indication: ABDOMINAL PAIN
     Dosage: 300 TO 900
     Dates: start: 20091027
  5. METHADONE [Concomitant]
     Indication: ABDOMINAL PAIN
     Dosage: 5-20 MG
     Dates: start: 20091027
  6. METHADONE [Concomitant]
     Indication: ABDOMINAL PAIN
     Dates: start: 20101224
  7. MORPHINE [Concomitant]
     Indication: ABDOMINAL PAIN
     Dosage: 10-20 MG
     Dates: start: 20091030
  8. PARACETAMOL [Concomitant]
     Indication: ABDOMINAL PAIN
     Dates: start: 20091027
  9. ENTOCORT [Concomitant]
     Indication: CROHN^S DISEASE
     Dates: start: 20091027, end: 20100128
  10. ENTOCORT [Concomitant]
     Dates: start: 20100128, end: 20110429
  11. PREDNISONE [Concomitant]
     Indication: CROHN^S DISEASE
     Dates: start: 20091027, end: 20091102
  12. PREDNISONE [Concomitant]
     Indication: RESPIRATORY TRACT OEDEMA
     Dates: start: 20091102
  13. PREDNISONE [Concomitant]
     Dates: start: 20100127
  14. PREDNISONE [Concomitant]
     Dates: start: 20101224, end: 20110128
  15. PREDNISONE [Concomitant]
     Dates: start: 20100429, end: 20110413
  16. PREDNISONE [Concomitant]
     Dates: start: 20110413, end: 20110427
  17. PREDNISONE [Concomitant]
     Dates: start: 20110427, end: 20110701
  18. CATAPRES [Concomitant]
     Indication: HYPERTENSION
     Route: 061
     Dates: start: 20091027
  19. ENSURE [Concomitant]
     Indication: PRODUCT USED FOR UNKNOWN INDICATION
     Dates: start: 20091027
  20. LACTULOSE [Concomitant]
     Indication: CONSTIPATION PROPHYLAXIS
     Dosage: 20-40 ML
     Dates: start: 20091029
  21. SALBUTAMOL [Concomitant]
     Indication: ASTHMA
     Dosage: 100-200 MCG
     Dates: start: 20101223
  22. SALBUTAMOL [Concomitant]
     Indication: OBSTRUCTIVE AIRWAYS DISORDER
  23. FLIXOTIDE [Concomitant]
     Indication: RESPIRATORY TRACT OEDEMA
     Dosage: 50-100 MCG
     Dates: start: 20101223
  24. CHOLECALCIFEROL [Concomitant]
     Indication: BONE DENSITY ABNORMAL
     Dates: start: 20101112
  25. SEVREDOL [Concomitant]
     Indication: ABDOMINAL PAIN
     Dosage: 10 TO 20
     Dates: start: 20100728, end: 20110705
  26. ZOLEDRONATE [Concomitant]
     Indication: OSTEOPOROSIS
     Route: 042
     Dates: start: 20080502, end: 20130502

REACTIONS (2)
  - Melaena [Recovered/Resolved]
  - Anaemia [Recovered/Resolved]
